FAERS Safety Report 9274477 (Version 3)
Quarter: 2013Q3

REPORT INFORMATION
  Report Type: Report from Study
  Country: DE (occurrence: DE)
  Receive Date: 20130507
  Receipt Date: 20130819
  Transmission Date: 20140515
  Serious: Yes (Other)
  Sender: FDA-Public Use
  Company Number: DE-ROCHE-1221410

PATIENT
  Sex: Male

DRUGS (2)
  1. LUCENTIS [Suspect]
     Indication: AGE-RELATED MACULAR DEGENERATION
     Route: 050
  2. LUCENTIS [Suspect]
     Indication: CHOROIDAL NEOVASCULARISATION
     Route: 050
     Dates: start: 20130415

REACTIONS (2)
  - Retinal haemorrhage [Unknown]
  - Disease progression [Unknown]
